FAERS Safety Report 16976500 (Version 4)
Quarter: 2020Q1

REPORT INFORMATION
  Report Type: Report from Study
  Country: CA (occurrence: CA)
  Receive Date: 20191030
  Receipt Date: 20200213
  Transmission Date: 20200409
  Serious: Yes (Hospitalization, Disabling, Other)
  Sender: FDA-Public Use
  Company Number: CA-JNJFOC-20190916618

PATIENT
  Age: 42 Year
  Sex: Female
  Weight: 98 kg

DRUGS (2)
  1. REMICADE [Suspect]
     Active Substance: INFLIXIMAB
     Indication: CROHN^S DISEASE
     Dosage: LAST ADM: 03-FEB-2020
     Route: 042
     Dates: start: 20150601
  2. REMICADE [Suspect]
     Active Substance: INFLIXIMAB
     Indication: HIDRADENITIS
     Route: 042
     Dates: start: 20190912

REACTIONS (8)
  - Wound infection [Unknown]
  - Sepsis [Unknown]
  - Fatigue [Not Recovered/Not Resolved]
  - Dizziness [Unknown]
  - Hidradenitis [Unknown]
  - Nausea [Not Recovered/Not Resolved]
  - Pulmonary embolism [Unknown]
  - Blood pressure increased [Recovering/Resolving]

NARRATIVE: CASE EVENT DATE: 2019
